FAERS Safety Report 12816565 (Version 1)
Quarter: 2016Q4

REPORT INFORMATION
  Report Type: Spontaneous
  Country: US (occurrence: US)
  Receive Date: 20161005
  Receipt Date: 20161005
  Transmission Date: 20170207
  Serious: Yes (Other)
  Sender: FDA-Public Use
  Company Number: None

PATIENT
  Age: 27 Year
  Sex: Male
  Weight: 67.5 kg

DRUGS (2)
  1. KOGENATE FS [Suspect]
     Active Substance: ANTIHEMOPHILIC FACTOR, HUMAN RECOMBINANT
     Indication: FACTOR VIII DEFICIENCY
     Dosage: 770 UNITS
     Route: 040
  2. SURFLO WINGED INFUSION SET [Suspect]
     Active Substance: DEVICE
     Dosage: 25GX3/4^ NEEDLE

REACTIONS (1)
  - Product contamination physical [None]

NARRATIVE: CASE EVENT DATE: 20161002
